FAERS Safety Report 8380829-8 (Version None)
Quarter: 2012Q2

REPORT INFORMATION
  Report Type: 
  Country: None (occurrence: None)
  Receive Date: 20120523
  Receipt Date: 20120514
  Transmission Date: 20120825
  Serious: Yes (Life-Threatening)
  Sender: FDA-Public Use
  Company Number: US-ROCHE-616336

PATIENT
  Sex: Female
  Weight: 54.4 kg

DRUGS (3)
  1. OXALIPLATIN [Suspect]
     Indication: COLORECTAL CANCER METASTATIC
     Route: 042
  2. XELODA [Suspect]
     Dosage: DOSE: 1000 BID FOR 14 DAYS; 2WEEKS ON 1 WEEK OFF REGIMEN
     Route: 048
  3. XELODA [Suspect]
     Indication: COLORECTAL CANCER METASTATIC
     Dosage: DOSAGE: 6 TABLETS DAILY; OTHER INDICATION :COLORECTAL CANCER
     Route: 048
     Dates: start: 20090209, end: 20090308

REACTIONS (5)
  - DISEASE PROGRESSION [None]
  - VOMITING [None]
  - NAUSEA [None]
  - CONSTIPATION [None]
  - PLATELET COUNT DECREASED [None]
